FAERS Safety Report 4442057-8 (Version None)
Quarter: 2004Q3

REPORT INFORMATION
  Report Type: 
  Country: None (occurrence: None)
  Receive Date: 20040901
  Receipt Date: 20040820
  Transmission Date: 20050211
  Serious: Yes (Hospitalization)
  Sender: FDA-Public Use
  Company Number: 6010147

PATIENT
  Age: 66 Year
  Sex: Female

DRUGS (4)
  1. SOPROL (TABELTS) (BISOPROLOL FUMARATE) [Suspect]
     Indication: HYPERTENSION
     Dosage: 5,00 MG (5 MG, 1 IN 1 D)
     Route: 048
     Dates: start: 19970701
  2. ACUILIX (TABLETS) (HYDROCHLOROTHIAZIDE, QUINAPRIL) [Suspect]
     Dosage: 0.500 (DOSAGE FORM (0.5 DOSAGE FORM, 1 IN 1 D)
     Route: 048
     Dates: start: 19990701
  3. PREVISCAN (FLUINDIONE) [Suspect]
     Indication: PULMONARY EMBOLISM
     Dosage: 1,00 DOSAGE FORMS (1 DOSAGE FORMS, 1 IN 1 D)
     Route: 048
     Dates: start: 20040428, end: 20040105
  4. CLONAZEPAM [Suspect]
     Dosage: 0,500 DOSAGE FORMS (0,5 DOSAGE FORMS, 1 IN 1 D)
     Route: 048

REACTIONS (4)
  - DRUG INTERACTION [None]
  - INTERNATIONAL NORMALISED RATIO DECREASED [None]
  - PROTHROMBIN TIME RATIO ABNORMAL [None]
  - THERAPEUTIC PRODUCT INEFFECTIVE [None]
